FAERS Safety Report 5925183-3 (Version None)
Quarter: 2008Q3

REPORT INFORMATION
  Report Type: 
  Country: None (occurrence: None)
  Receive Date: 20080909
  Receipt Date: 20080529
  Transmission Date: 20090109
  Serious: Yes (Hospitalization)
  Sender: FDA-Public Use
  Company Number: 163-20785-07081766

PATIENT
  Age: 55 Year
  Sex: Female
  Weight: 104.7809 kg

DRUGS (18)
  1. THALOMID [Suspect]
     Indication: MULTIPLE MYELOMA
     Dosage: 100 MG, QD, ORAL ; 50-100MG, QD, ORAL ; 200 MG, DAYS 4-7, ORAL
     Route: 048
     Dates: start: 20050614
  2. THALOMID [Suspect]
     Indication: MULTIPLE MYELOMA
     Dosage: 100 MG, QD, ORAL ; 50-100MG, QD, ORAL ; 200 MG, DAYS 4-7, ORAL
     Route: 048
     Dates: start: 20070701
  3. THALOMID [Suspect]
  4. DEXAMETHASONE TAB [Suspect]
     Indication: MULTIPLE MYELOMA
     Dosage: 20 MG, DAYS 1-4, EVERY 28 DAYS ; 20 MG, QD X 4 DAYS EVERY 21 DAYS ; 40 MG, DAYS 4-7
     Dates: start: 20050614
  5. DEXAMETHASONE TAB [Suspect]
     Indication: MULTIPLE MYELOMA
     Dosage: 20 MG, DAYS 1-4, EVERY 28 DAYS ; 20 MG, QD X 4 DAYS EVERY 21 DAYS ; 40 MG, DAYS 4-7
     Dates: start: 20070701
  6. VELCADE [Suspect]
     Indication: MULTIPLE MYELOMA
     Dosage: 1.8MG-1.9MG, DAYS 1, 4, 8, 11
     Dates: start: 20050611, end: 20070614
  7. CLOTRIMAZOLE (CLOTRIMAZOLE) (TROCHE) [Concomitant]
  8. ACYCLOVIR [Concomitant]
  9. ZANTAC 150 [Concomitant]
  10. MULTIVTAMIN (MULTIVITAMIN ^LAPPE^) [Concomitant]
  11. ASPIRIN [Concomitant]
  12. VITAMIN D + CALCIUM (ERGOCALCIFEROL) [Concomitant]
  13. LUNESTA [Concomitant]
  14. CALCIUM (CALCIUM) [Concomitant]
  15. CISPLATIN [Concomitant]
  16. ADRIAMYCIN PFS [Concomitant]
  17. CYCLOPHOSPHAMIDE [Concomitant]
  18. ETOPOSIDE [Concomitant]

REACTIONS (1)
  - VENA CAVA THROMBOSIS [None]
